FAERS Safety Report 18845752 (Version 1)
Quarter: 2021Q1

REPORT INFORMATION
  Report Type: Report from Study
  Country: US (occurrence: US)
  Receive Date: 20210203
  Receipt Date: 20210203
  Transmission Date: 20210419
  Serious: No
  Sender: FDA-Public Use
  Company Number: US-EXELIXIS-CABO-20030490

PATIENT
  Age: 63 Year
  Sex: Female

DRUGS (3)
  1. CABOMETYX [Suspect]
     Active Substance: CABOZANTINIB S-MALATE
     Dosage: 40 MG, QD
     Route: 048
     Dates: start: 20200813
  2. CABOMETYX [Suspect]
     Active Substance: CABOZANTINIB S-MALATE
     Dosage: 20 MG, QD
     Route: 048
     Dates: start: 20200709
  3. CABOMETYX [Suspect]
     Active Substance: CABOZANTINIB S-MALATE
     Indication: HEPATOCELLULAR CARCINOMA
     Dosage: 60 MG, QD
     Route: 048
     Dates: start: 20200605

REACTIONS (11)
  - Oral disorder [Unknown]
  - Dyspnoea [Unknown]
  - Diarrhoea [Unknown]
  - Hyperkeratosis [Recovering/Resolving]
  - Adverse drug reaction [Unknown]
  - White blood cell count decreased [Unknown]
  - Blood pressure increased [Unknown]
  - Drug ineffective [Unknown]
  - Renal disorder [Unknown]
  - Dry skin [Unknown]
  - Pain in extremity [Unknown]

NARRATIVE: CASE EVENT DATE: 202006
